FAERS Safety Report 17605033 (Version 2)
Quarter: 2020Q2

REPORT INFORMATION
  Report Type: Report from Study
  Country: US (occurrence: US)
  Receive Date: 20200331
  Receipt Date: 20200507
  Transmission Date: 20200713
  Serious: Yes (Other)
  Sender: FDA-Public Use
  Company Number: US-GLAXOSMITHKLINE-US2020TSO012726

PATIENT
  Age: 71 Year
  Sex: Female

DRUGS (3)
  1. NIRAPARIB [Suspect]
     Active Substance: NIRAPARIB
     Dosage: 200 MG, QOD
     Route: 048
  2. NIRAPARIB [Suspect]
     Active Substance: NIRAPARIB
     Indication: OVARIAN CANCER
     Dosage: 200 MG, QD
     Dates: start: 20200101
  3. NIRAPARIB [Suspect]
     Active Substance: NIRAPARIB
     Dosage: 200 MG, QD, PM WITH FOOD
     Route: 048
     Dates: start: 20200102

REACTIONS (12)
  - Haemorrhoids [Unknown]
  - Vomiting [Recovered/Resolved]
  - Blood pressure increased [Recovering/Resolving]
  - Transfusion [Unknown]
  - Fatigue [Unknown]
  - Haemoglobin decreased [Recovering/Resolving]
  - Ureteritis [Unknown]
  - Dry skin [Unknown]
  - Off label use [Unknown]
  - Carbohydrate antigen 125 increased [Unknown]
  - Heart rate increased [Recovering/Resolving]
  - Stent placement [Unknown]

NARRATIVE: CASE EVENT DATE: 202002
